FAERS Safety Report 14502673 (Version 1)
Quarter: 2018Q1

REPORT INFORMATION
  Report Type: Spontaneous
  Country: ES (occurrence: ES)
  Receive Date: 20180208
  Receipt Date: 20180208
  Transmission Date: 20180509
  Serious: Yes (Other)
  Sender: FDA-Public Use
  Company Number: ES-CONCORDIA PHARMACEUTICALS INC.-E2B_00009767

PATIENT
  Sex: Female

DRUGS (2)
  1. FLECAINIDE [Concomitant]
     Active Substance: FLECAINIDE
  2. DIGOXIN. [Suspect]
     Active Substance: DIGOXIN
     Route: 065

REACTIONS (2)
  - Exposure during pregnancy [Unknown]
  - Electrocardiogram QT prolonged [Recovering/Resolving]
